FAERS Safety Report 8436858-9 (Version None)
Quarter: 2012Q2

REPORT INFORMATION
  Report Type: 
  Country: None (occurrence: None)
  Receive Date: 20120608
  Receipt Date: 20120608
  Transmission Date: 20120825
  Serious: No
  Sender: FDA-Public Use
  Company Number: None

PATIENT
  Sex: Male
  Weight: 87 kg

DRUGS (2)
  1. ATORVASTATIN [Suspect]
     Dosage: LIPITOR 40 MG DAILY GENERIC
     Dates: start: 20111206
  2. ATORVASTATIN [Suspect]
     Dosage: LIPITOR 40 MG DAILY GENERIC
     Dates: start: 20120102

REACTIONS (1)
  - PRURITUS [None]
